FAERS Safety Report 5684879-1 (Version None)
Quarter: 2008Q1

REPORT INFORMATION
  Report Type: 
  Country: None (occurrence: None)
  Receive Date: 20080328
  Receipt Date: 19960209
  Transmission Date: 20080703
  Serious: Yes (Death, Life-Threatening, Hospitalization)
  Sender: FDA-Public Use
  Company Number: US-ROCHE-59243

PATIENT
  Age: 13 Year
  Sex: Female
  Weight: 41 kg

DRUGS (2)
  1. KETOROLAC TROMETHAMINE [Suspect]
     Indication: BACK PAIN
     Route: 048
     Dates: start: 19950518, end: 19950518
  2. ANTIBIOTIC NOS [Concomitant]
     Route: 030
     Dates: start: 19950518, end: 19950518

REACTIONS (9)
  - ABDOMINAL PAIN [None]
  - ACTIVATED PARTIAL THROMBOPLASTIN TIME ABNORMAL [None]
  - DEATH [None]
  - HEPATIC ENZYME INCREASED [None]
  - INTRA-ABDOMINAL HAEMORRHAGE [None]
  - LEUKOPENIA [None]
  - PROTHROMBIN TIME ABNORMAL [None]
  - THROMBOCYTOPENIA [None]
  - VOMITING [None]
